FAERS Safety Report 9818419 (Version 1)
Quarter: 2014Q1

REPORT INFORMATION
  Report Type: Spontaneous
  Country: FR (occurrence: FR)
  Receive Date: 20140115
  Receipt Date: 20140115
  Transmission Date: 20141002
  Serious: Yes (Hospitalization)
  Sender: FDA-Public Use
  Company Number: FR-GE HEALTHCARE MEDICAL DIAGNOSTICS-OMPQ-PR-1401S-0012

PATIENT
  Age: 84 Year
  Sex: Male

DRUGS (9)
  1. OMNIPAQUE [Suspect]
     Indication: PRODUCT USED FOR UNKNOWN INDICATION
     Dosage: DOSE NOT REPORTED
     Route: 042
     Dates: start: 20131129, end: 20131129
  2. OMNIPAQUE [Suspect]
     Indication: DIAGNOSTIC PROCEDURE
  3. BISOCE [Suspect]
  4. KARDEGIC [Concomitant]
  5. CRESTOR [Concomitant]
  6. CORDARONE [Concomitant]
  7. PROCORALAN [Concomitant]
  8. LASILIX [Concomitant]
  9. BRILIQUE [Concomitant]

REACTIONS (1)
  - Renal failure acute [Not Recovered/Not Resolved]
